FAERS Safety Report 9768166 (Version 1)
Quarter: 2013Q4

REPORT INFORMATION
  Report Type: Report from Study
  Country: AR (occurrence: AR)
  Receive Date: 20131217
  Receipt Date: 20131217
  Transmission Date: 20140711
  Serious: Yes (Death)
  Sender: FDA-Public Use
  Company Number: AR-VIIV HEALTHCARE LIMITED-B0860695C

PATIENT
  Age: 37 Year
  Sex: Female

DRUGS (2)
  1. MARAVIROC [Suspect]
     Indication: HIV INFECTION
     Dosage: 150MG TWICE PER DAY
     Route: 048
     Dates: start: 20121220, end: 20131112
  2. LOPINAVIR + RITONAVIR [Concomitant]
     Indication: ANTIRETROVIRAL THERAPY
     Route: 048
     Dates: start: 20010415, end: 20131112

REACTIONS (2)
  - Necrotising fasciitis [Fatal]
  - Septic shock [Fatal]
